FAERS Safety Report 13367173 (Version 2)
Quarter: 2018Q1

REPORT INFORMATION
  Report Type: Report from Study
  Country: US (occurrence: US)
  Receive Date: 20170324
  Receipt Date: 20180101
  Transmission Date: 20180508
  Serious: Yes (Hospitalization)
  Sender: FDA-Public Use
  Company Number: US-ROCHE-1910238

PATIENT
  Age: 77 Year
  Sex: Male
  Weight: 72.64 kg

DRUGS (3)
  1. PULMOZYME [Suspect]
     Active Substance: DORNASE ALFA
     Indication: CHRONIC OBSTRUCTIVE PULMONARY DISEASE
  2. PULMOZYME [Suspect]
     Active Substance: DORNASE ALFA
     Indication: BRONCHIECTASIS
  3. PULMOZYME [Suspect]
     Active Substance: DORNASE ALFA
     Indication: LUNG DISORDER
     Dosage: ONGOING : YES
     Route: 055

REACTIONS (5)
  - Pneumonia [Unknown]
  - Lung disorder [Unknown]
  - Dyspnoea [Unknown]
  - Ill-defined disorder [Unknown]
  - Cardiac failure [Unknown]

NARRATIVE: CASE EVENT DATE: 201710
